FAERS Safety Report 10471826 (Version 2)
Quarter: 2014Q4

REPORT INFORMATION
  Report Type: Spontaneous
  Country: US (occurrence: US)
  Receive Date: 20140924
  Receipt Date: 20141001
  Transmission Date: 20150528
  Serious: Yes (Death, Hospitalization, Other)
  Sender: FDA-Public Use
  Company Number: US-AMGEN-USASP2014072623

PATIENT
  Age: 62 Year
  Sex: Female

DRUGS (2)
  1. PREDNISONE. [Suspect]
     Active Substance: PREDNISONE
     Indication: PRODUCT USED FOR UNKNOWN INDICATION
     Dosage: UNK
     Route: 065
  2. ENBREL [Suspect]
     Active Substance: ETANERCEPT
     Indication: RHEUMATOID ARTHRITIS
     Dosage: UNK MG, QWK
     Route: 065
     Dates: start: 2011

REACTIONS (11)
  - Adverse event [Recovered/Resolved]
  - Intestinal ischaemia [Fatal]
  - Staphylococcal infection [Recovered/Resolved]
  - Pain [Recovered/Resolved]
  - Intestinal haemorrhage [Fatal]
  - Appendicectomy [Recovered/Resolved]
  - Skin graft [Recovered/Resolved]
  - Musculoskeletal disorder [Recovered/Resolved]
  - Intestinal perforation [Fatal]
  - Skin atrophy [Recovered/Resolved]
  - Vascular graft [Recovered/Resolved]
